FAERS Safety Report 18484788 (Version 1)
Quarter: 2020Q4

REPORT INFORMATION
  Report Type: Spontaneous
  Country: US (occurrence: US)
  Receive Date: 20201109
  Receipt Date: 20201109
  Transmission Date: 20210114
  Serious: Yes (Other)
  Sender: FDA-Public Use
  Company Number: None

PATIENT
  Age: 43 Year
  Sex: Female

DRUGS (12)
  1. TECFIDERA 240MG, [Concomitant]
  2. ASPIRIN 81MG, [Concomitant]
  3. FUROSEMIDE 20MG, [Concomitant]
  4. DALFAMPRIDINE 10MG ER [Suspect]
     Active Substance: DALFAMPRIDINE
     Indication: MULTIPLE SCLEROSIS
     Route: 048
     Dates: start: 20181130
  5. CYCLOTENAPRINE 10MG [Concomitant]
  6. NETFORMIN 1000MG [Concomitant]
  7. VITAMIN D 1000 UNITS [Concomitant]
  8. AMLODIPINE 5MG, [Concomitant]
  9. LOSARTAN 50MG, [Concomitant]
  10. SUMATRIPTAN 50MG, [Concomitant]
  11. ATORVASTATION 40, [Concomitant]
  12. DICLOFENAC 50MG, [Concomitant]

REACTIONS (3)
  - Nausea [None]
  - Dizziness [None]
  - Fatigue [None]
